FAERS Safety Report 4446884-2 (Version None)
Quarter: 2004Q3

REPORT INFORMATION
  Report Type: 
  Country: None (occurrence: None)
  Receive Date: 20040908
  Receipt Date: 20040826
  Transmission Date: 20050211
  Serious: Yes (Hospitalization)
  Sender: FDA-Public Use
  Company Number: 044-0981-M0000017

PATIENT
  Age: 62 Year
  Sex: Male
  Weight: 71.2 kg

DRUGS (10)
  1. ATORVASTATIN (ATORVASTATIN) [Suspect]
     Indication: HYPERLIPIDAEMIA
     Dosage: 10 MG (DAILY), ORAL; 10 OR 80 MG (DAILY, PO;  10 OR 80 MG (DAILY), PO
     Route: 048
     Dates: start: 19990310, end: 19990511
  2. ATORVASTATIN (ATORVASTATIN) [Suspect]
     Indication: HYPERLIPIDAEMIA
     Dosage: 10 MG (DAILY), ORAL; 10 OR 80 MG (DAILY, PO;  10 OR 80 MG (DAILY), PO
     Route: 048
     Dates: start: 19990512, end: 19990920
  3. ATORVASTATIN (ATORVASTATIN) [Suspect]
     Indication: HYPERLIPIDAEMIA
     Dosage: 10 MG (DAILY), ORAL; 10 OR 80 MG (DAILY, PO;  10 OR 80 MG (DAILY), PO
     Route: 048
     Dates: start: 19990926
  4. DIGOXIN [Concomitant]
  5. FUROSEMIDE [Concomitant]
  6. ISOSORBIDE MONONITRATE [Concomitant]
  7. ASPIRIN [Concomitant]
  8. WARFARIN  (WARFARIN) [Concomitant]
  9. LISINOPRIL [Concomitant]
  10. NITROGLYCERIN [Concomitant]

REACTIONS (6)
  - CARDIAC ARREST [None]
  - CARDIAC FAILURE CONGESTIVE [None]
  - CIRCULATORY COLLAPSE [None]
  - LOWER RESPIRATORY TRACT INFECTION [None]
  - MYOCARDIAL INFARCTION [None]
  - TRANSIENT ISCHAEMIC ATTACK [None]
